FAERS Safety Report 24726556 (Version 1)
Quarter: 2024Q4

REPORT INFORMATION
  Report Type: Spontaneous
  Country: US (occurrence: US)
  Receive Date: 20241212
  Receipt Date: 20241212
  Transmission Date: 20250114
  Serious: No
  Sender: ABBVIE
  Company Number: US-ABBVIE-6041914

PATIENT

DRUGS (1)
  1. REFRESH RELIEVA PF [Suspect]
     Active Substance: CARBOXYMETHYLCELLULOSE SODIUM\GLYCERIN
     Indication: Product used for unknown indication
     Dosage: GLYCERIN 0.5% SOL (011364X)
     Route: 047

REACTIONS (2)
  - Arthritis [Unknown]
  - Product container issue [Not Recovered/Not Resolved]
